FAERS Safety Report 18856198 (Version 1)
Quarter: 2021Q1

REPORT INFORMATION
  Report Type: Spontaneous
  Country: US (occurrence: US)
  Receive Date: 20210206
  Receipt Date: 20210206
  Transmission Date: 20210420
  Serious: No
  Sender: FDA-Public Use
  Company Number: US-TEVA-2020-US-1817621

PATIENT
  Age: 44 Year
  Sex: Male

DRUGS (4)
  1. ACTIQ [Suspect]
     Active Substance: FENTANYL CITRATE
     Indication: JOINT INJURY
  2. ACTIQ [Suspect]
     Active Substance: FENTANYL CITRATE
     Indication: BACK INJURY
  3. XANAX [Concomitant]
     Active Substance: ALPRAZOLAM
     Route: 065
  4. ACTIQ [Suspect]
     Active Substance: FENTANYL CITRATE
     Indication: JOINT INJURY
     Route: 048
     Dates: start: 2004

REACTIONS (4)
  - Product use in unapproved indication [Unknown]
  - Tooth loss [Not Recovered/Not Resolved]
  - Dental caries [Not Recovered/Not Resolved]
  - Tooth fracture [Not Recovered/Not Resolved]

NARRATIVE: CASE EVENT DATE: 2010
